FAERS Safety Report 20763037 (Version 7)
Quarter: 2024Q4

REPORT INFORMATION
  Report Type: Spontaneous
  Country: US (occurrence: US)
  Receive Date: 20220428
  Receipt Date: 20241218
  Transmission Date: 20250115
  Serious: No
  Sender: PFIZER
  Company Number: US-PFIZER INC-202200611697

PATIENT
  Age: 71 Year
  Sex: Female

DRUGS (2)
  1. IBRANCE [Suspect]
     Active Substance: PALBOCICLIB
     Dosage: 125 MG, CYCLIC (21 DAYS THEN OFF 7)
  2. IBRANCE [Suspect]
     Active Substance: PALBOCICLIB
     Dosage: 125 MG, CYCLIC ((TAKE 1 TABLET (125 MG TOTAL) BY MOUTH ONCE DAILY FOR 21 DAYS, THEN OFF 7 DAYS)
     Route: 048

REACTIONS (2)
  - COVID-19 [Unknown]
  - Brain fog [Unknown]
